FAERS Safety Report 6641678-1 (Version None)
Quarter: 2010Q1

REPORT INFORMATION
  Report Type: 
  Country: None (occurrence: None)
  Receive Date: 20100316
  Receipt Date: 20100304
  Transmission Date: 20100710
  Serious: Yes (Other)
  Sender: FDA-Public Use
  Company Number: WAES 1003USA00873

PATIENT
  Age: 62 Year
  Sex: Male
  Weight: 75.2971 kg

DRUGS (10)
  1. CAP VORINOSTAT UNK [Suspect]
     Indication: RENAL CELL CARCINOMA
     Dosage: 200MG/DAILY/PO
     Route: 047
     Dates: start: 20091027, end: 20100221
  2. TAB SORAFENIB UNK [Suspect]
     Indication: RENAL CELL CARCINOMA
     Dosage: 400MG/BID/PO
     Route: 048
     Dates: start: 20091027, end: 20100301
  3. BENADRYL [Concomitant]
  4. TYLENOL-500 [Concomitant]
  5. ENALAPRIL MALEATE [Concomitant]
  6. LORAZEPAM [Concomitant]
  7. OXYCODONE HCL [Concomitant]
  8. PREDNISONE [Concomitant]
  9. VARENICLINE TARTRATE [Concomitant]
  10. VITAMINS (UNSPECIFIED) [Concomitant]

REACTIONS (1)
  - ABDOMINAL STRANGULATED HERNIA [None]
